FAERS Safety Report 14647495 (Version 2)
Quarter: 2018Q2

REPORT INFORMATION
  Report Type: Report from Study
  Country: DE (occurrence: DE)
  Receive Date: 20180316
  Receipt Date: 20180413
  Transmission Date: 20180711
  Serious: Yes (Life-Threatening, Hospitalization, Other)
  Sender: FDA-Public Use
  Company Number: DE-TORRENT-00007934

PATIENT
  Sex: Male
  Weight: 108 kg

DRUGS (3)
  1. HUMIRA [Suspect]
     Active Substance: ADALIMUMAB
     Indication: PSORIASIS
     Route: 058
     Dates: start: 20141201, end: 20171201
  2. RAMIPRIL. [Suspect]
     Active Substance: RAMIPRIL
     Indication: PRODUCT USED FOR UNKNOWN INDICATION
     Route: 048
  3. AMLODIPIN [Suspect]
     Active Substance: AMLODIPINE BESYLATE
     Indication: PRODUCT USED FOR UNKNOWN INDICATION
     Route: 065

REACTIONS (18)
  - Haematoma [Unknown]
  - Intervertebral disc space narrowing [Unknown]
  - Marrow hyperplasia [Unknown]
  - Bile duct stone [Unknown]
  - Hyperplasia [Unknown]
  - Intervertebral disc displacement [Unknown]
  - Rib fracture [Unknown]
  - Musculoskeletal chest pain [Unknown]
  - Immune thrombocytopenic purpura [Recovered/Resolved]
  - Injury [Unknown]
  - Vertebral osteophyte [Unknown]
  - Fatigue [Unknown]
  - Fall [Unknown]
  - Cerebral haemorrhage [Unknown]
  - Lymphadenopathy [Unknown]
  - Fracture displacement [Unknown]
  - Epistaxis [Unknown]
  - Bone marrow failure [Unknown]

NARRATIVE: CASE EVENT DATE: 20161001
